FAERS Safety Report 9707295 (Version 1)
Quarter: 2013Q4

REPORT INFORMATION
  Report Type: Spontaneous
  Country: US (occurrence: US)
  Receive Date: 20131125
  Receipt Date: 20131125
  Transmission Date: 20140711
  Serious: No
  Sender: FDA-Public Use
  Company Number: US-GLAXOSMITHKLINE-A0997682A

PATIENT
  Sex: Female

DRUGS (4)
  1. FLOVENT [Suspect]
     Indication: DYSPNOEA
     Dosage: 1PUFF TWICE PER DAY
     Route: 055
     Dates: start: 20120928
  2. XOPENEX [Concomitant]
  3. MUCINEX [Concomitant]
  4. FLUTICASONE NASAL SPRAY [Concomitant]

REACTIONS (3)
  - Throat irritation [Recovered/Resolved]
  - Dysphagia [Unknown]
  - Aphonia [Unknown]
